FAERS Safety Report 20616737 (Version 3)
Quarter: 2022Q2

REPORT INFORMATION
  Report Type: Spontaneous
  Country: US (occurrence: US)
  Receive Date: 20220321
  Receipt Date: 20220607
  Transmission Date: 20220721
  Serious: No
  Sender: FDA-Public Use
  Company Number: US-BIOGEN-2018BI00618711

PATIENT
  Age: 52 Year
  Sex: Female

DRUGS (3)
  1. TECFIDERA [Suspect]
     Active Substance: DIMETHYL FUMARATE
     Indication: Multiple sclerosis
     Route: 050
     Dates: start: 201802
  2. TECFIDERA [Suspect]
     Active Substance: DIMETHYL FUMARATE
     Route: 050
     Dates: start: 202105
  3. TECFIDERA [Suspect]
     Active Substance: DIMETHYL FUMARATE
     Route: 048
     Dates: start: 202109

REACTIONS (15)
  - Product dose omission issue [Unknown]
  - Fatigue [Unknown]
  - Urinary incontinence [Unknown]
  - Defaecation urgency [Unknown]
  - Gait disturbance [Unknown]
  - Abdominal discomfort [Unknown]
  - Multiple sclerosis [Unknown]
  - Dehydration [Unknown]
  - Headache [Unknown]
  - Contusion [Unknown]
  - Fall [Recovered/Resolved]
  - Nausea [Unknown]
  - Flushing [Unknown]
  - Vomiting [Unknown]
  - Diarrhoea [Unknown]

NARRATIVE: CASE EVENT DATE: 20220317
